FAERS Safety Report 7776901-3 (Version None)
Quarter: 2011Q3

REPORT INFORMATION
  Report Type: 
  Country: None (occurrence: None)
  Receive Date: 20110926
  Receipt Date: 20110908
  Transmission Date: 20111222
  Serious: Yes (Hospitalization, Other)
  Sender: FDA-Public Use
  Company Number: BR-BAYER-2010-002036

PATIENT
  Age: 72 Year
  Sex: Female
  Weight: 56.3 kg

DRUGS (44)
  1. CLOPIDOGREL [Interacting]
     Indication: ACUTE CORONARY SYNDROME
     Route: 048
     Dates: end: 20101013
  2. ATORVASTATIN [Concomitant]
  3. ACETYLSALICYLIC ACID SRT [Interacting]
     Dates: end: 20101013
  4. CLOPIDOGREL [Interacting]
     Dates: end: 20101018
  5. POLYETHYLENE GLYCOL [Concomitant]
  6. MAGNESIUM SULFATE [Concomitant]
  7. PROMETHAZINE [Concomitant]
  8. OFTAN CATACHROM [ADENOS,BENZALK CHLORIDE,CYTOCHROME C,B3,SUCC NA+] [Concomitant]
  9. METOPROLOL SUCCINATE [Concomitant]
  10. DESLANOSIDE [Concomitant]
  11. ACETYLSALICYLIC ACID SRT [Interacting]
     Dates: end: 20101018
  12. CLOPIDOGREL [Interacting]
     Dates: start: 20101030
  13. NITROGLYCERIN [Concomitant]
  14. MOXIFLOXACIN [Concomitant]
  15. POTASSIUM CHLORIDE [Concomitant]
  16. PANTOPRAZOLE [Concomitant]
  17. DOBUTAMINE HCL [Concomitant]
  18. AMLODIPINE [Concomitant]
  19. BROMOPRIDE [Concomitant]
  20. CAPTOPRIL [Concomitant]
  21. NPH INSULIN [Concomitant]
  22. ETHYLHYDROXYETHYLCELLULOSE [Concomitant]
  23. CEFAZOLIN [Concomitant]
  24. BLINDED RIVAROXABAN [Suspect]
     Indication: ACUTE CORONARY SYNDROME
     Dosage: DOSAGE FORM: TABLET
     Route: 048
     Dates: start: 20101022, end: 20101203
  25. ACETYLSALICYLIC ACID SRT [Interacting]
     Indication: ACUTE CORONARY SYNDROME
     Route: 048
  26. DEXAMETHASONE [Concomitant]
  27. DIPYRONE TAB [Concomitant]
  28. FUROSEMIDE [Concomitant]
  29. TRIMETAZIDINE [Concomitant]
  30. TRAMADOL [Concomitant]
  31. HALOPERIDOL [Concomitant]
  32. DEXTROSE [Concomitant]
  33. SPIRONOLACTONE [Concomitant]
  34. ENOXAPARIN [Interacting]
  35. SACCHAROMYCES BOULARDII [Concomitant]
  36. RANITIDINE [Concomitant]
  37. OMEPRAZOLE [Concomitant]
  38. MORPHINE [Concomitant]
  39. ACETAMINOPHEN [Concomitant]
  40. CARVEDILOL [Concomitant]
  41. ACETYLCYSTEINE [Concomitant]
  42. REGULAR INSULIN [Concomitant]
  43. SIMETHICONE [Concomitant]
  44. ISOSORBIDE DINITRATE [Concomitant]

REACTIONS (4)
  - HAEMATOCHEZIA [None]
  - PULMONARY EMBOLISM [None]
  - ANGINA PECTORIS [None]
  - PLEURAL EFFUSION [None]
